FAERS Safety Report 19195830 (Version 3)
Quarter: 2022Q2

REPORT INFORMATION
  Report Type: Spontaneous
  Country: AU (occurrence: AU)
  Receive Date: 20210429
  Receipt Date: 20220419
  Transmission Date: 20220721
  Serious: Yes (Other)
  Sender: FDA-Public Use
  Company Number: AU-NOVARTISPH-NVSC2021AU093446

PATIENT
  Sex: Female

DRUGS (3)
  1. GILENYA [Suspect]
     Active Substance: FINGOLIMOD HYDROCHLORIDE
     Indication: Product used for unknown indication
     Dosage: UNK, QD
     Route: 048
  2. GILENYA [Suspect]
     Active Substance: FINGOLIMOD HYDROCHLORIDE
     Dosage: ONCE EVERY 3RD DAY
     Route: 048
  3. GILENYA [Suspect]
     Active Substance: FINGOLIMOD HYDROCHLORIDE
     Dosage: ONCE EVERY 2 DAY FREQUENCY
     Route: 048

REACTIONS (7)
  - Multiple sclerosis [Unknown]
  - Paraesthesia [Unknown]
  - Vision blurred [Unknown]
  - Fatigue [Unknown]
  - Hypoaesthesia [Unknown]
  - Lymphopenia [Unknown]
  - Inappropriate schedule of product administration [Unknown]
